FAERS Safety Report 8261001-9 (Version None)
Quarter: 2012Q2

REPORT INFORMATION
  Report Type: 
  Country: None (occurrence: None)
  Receive Date: 20120405
  Receipt Date: 20120331
  Transmission Date: 20120825
  Serious: No
  Sender: FDA-Public Use
  Company Number: US-PFIZER INC-2012083134

PATIENT
  Sex: Female

DRUGS (1)
  1. LYRICA [Suspect]
     Dosage: 150 MG, 2X/DAY

REACTIONS (4)
  - MOOD SWINGS [None]
  - OEDEMA PERIPHERAL [None]
  - WEIGHT FLUCTUATION [None]
  - SWELLING FACE [None]
